FAERS Safety Report 6856339-3 (Version None)
Quarter: 2010Q3

REPORT INFORMATION
  Report Type: 
  Country: None (occurrence: None)
  Receive Date: 20100719
  Receipt Date: 20100713
  Transmission Date: 20110219
  Serious: Yes (Life-Threatening, Other)
  Sender: FDA-Public Use
  Company Number: CH-ELI_LILLY_AND_COMPANY-CH201007003705

PATIENT
  Weight: 4.45 kg

DRUGS (3)
  1. HUMULIN N [Suspect]
     Dosage: 28 IU, UNKNOWN
     Route: 064
     Dates: start: 20090202, end: 20091014
  2. TEGRETOL [Concomitant]
     Dosage: 400 MG, 2/D
     Route: 064
  3. ACIDE FOLIQUE [Concomitant]
     Dosage: 5 MG, DAILY (1/D)
     Route: 064

REACTIONS (5)
  - CEREBROVASCULAR DISORDER [None]
  - DRUG EXPOSURE DURING PREGNANCY [None]
  - FOETAL HEART RATE ABNORMAL [None]
  - MACROSOMIA [None]
  - NEONATAL RESPIRATORY ARREST [None]
